FAERS Safety Report 7942897-4 (Version None)
Quarter: 2011Q4

REPORT INFORMATION
  Report Type: 
  Country: None (occurrence: None)
  Receive Date: 20111128
  Receipt Date: 20111115
  Transmission Date: 20120403
  Serious: Yes (Death, Hospitalization, Other)
  Sender: FDA-Public Use
  Company Number: CA-ELI_LILLY_AND_COMPANY-CA201111004526

PATIENT
  Sex: Male

DRUGS (11)
  1. LITHIUM [Concomitant]
  2. CELEBREX [Concomitant]
  3. ARTHROTEC [Concomitant]
  4. ZYPREXA [Suspect]
     Dosage: 7.5 MG, EACH EVENING
  5. DALMANE [Concomitant]
  6. ALTACE [Concomitant]
  7. IMOVANE [Concomitant]
  8. FUROSEMIDE [Concomitant]
  9. ZYPREXA [Suspect]
     Indication: PSYCHOTIC DISORDER
     Dosage: 10 MG, EACH EVENING
  10. CHLORAL HYDRATE [Concomitant]
  11. ATIVAN [Concomitant]

REACTIONS (11)
  - URINARY TRACT INFECTION [None]
  - ANAEMIA [None]
  - SLEEP APNOEA SYNDROME [None]
  - PANCREATITIS [None]
  - WEIGHT INCREASED [None]
  - DIABETIC NEUROPATHY [None]
  - BLOOD TRIGLYCERIDES INCREASED [None]
  - PANCREATIC CARCINOMA [None]
  - TYPE 1 DIABETES MELLITUS [None]
  - PERICARDIAL EFFUSION [None]
  - NEPHROLITHIASIS [None]
